FAERS Safety Report 6709280-0 (Version None)
Quarter: 2010Q2

REPORT INFORMATION
  Report Type: 
  Country: None (occurrence: None)
  Receive Date: 20100426
  Receipt Date: 20090804
  Transmission Date: 20101027
  Serious: Yes (Other)
  Sender: FDA-Public Use
  Company Number: TEST00209004392

PATIENT
  Age: 33 Year
  Sex: Male
  Weight: 96 kg

DRUGS (2)
  1. ANDROGEL [Suspect]
     Indication: BLOOD TESTOSTERONE FREE DECREASED
     Dosage: 5GMS QDP; 2.5 GMS QD,TRANSCUTANEOUS ,VIA PUMP
     Route: 062
     Dates: start: 20080701, end: 20090101
  2. ANDROGEL [Suspect]
     Indication: BLOOD TESTOSTERONE FREE DECREASED
     Dosage: 5GMS QDP; 2.5 GMS QD,TRANSCUTANEOUS ,VIA PUMP
     Route: 062
     Dates: start: 20090101, end: 20090401

REACTIONS (1)
  - RENAL IMPAIRMENT [None]
